FAERS Safety Report 9215607 (Version 2)
Quarter: 2013Q2

REPORT INFORMATION
  Report Type: Spontaneous
  Country: US (occurrence: US)
  Receive Date: 20130408
  Receipt Date: 20130412
  Transmission Date: 20140414
  Serious: Yes (Hospitalization, Disabling)
  Sender: FDA-Public Use
  Company Number: US-B.I. PHARMACEUTICALS,INC./RIDGEFIELD-2013-BI-09024BP

PATIENT
  Age: 95 Year
  Sex: Female

DRUGS (8)
  1. SPIRIVA [Suspect]
     Indication: PULMONARY FUNCTION TEST ABNORMAL
     Dosage: 18 MCG
     Route: 055
     Dates: start: 201301
  2. DIGITOX [Concomitant]
     Indication: CARDIAC DISORDER
     Dates: end: 201301
  3. ALEVE [Concomitant]
     Indication: ARTHRITIS
     Dates: end: 201303
  4. FOSAMAX [Concomitant]
  5. MULTIVITAMIN [Concomitant]
  6. CLARITIN [Concomitant]
  7. BABY ASPIRIN [Concomitant]
  8. ISOSORBIDE [Concomitant]
     Indication: BLOOD PRESSURE ABNORMAL

REACTIONS (8)
  - Cardiac failure congestive [Not Recovered/Not Resolved]
  - Pneumonia [Not Recovered/Not Resolved]
  - Arthritis [Recovered/Resolved]
  - Chondrocalcinosis pyrophosphate [Recovered/Resolved]
  - Blood pressure increased [Recovered/Resolved]
  - Cough [Not Recovered/Not Resolved]
  - Product quality issue [Recovered/Resolved]
  - Product quality issue [Recovered/Resolved]
